FAERS Safety Report 7083579-3 (Version None)
Quarter: 2010Q4

REPORT INFORMATION
  Report Type: 
  Country: None (occurrence: None)
  Receive Date: 20101103
  Receipt Date: 20101103
  Transmission Date: 20110411
  Serious: Yes (Death)
  Sender: FDA-Public Use
  Company Number: None

PATIENT
  Age: 30 Year
  Sex: Female
  Weight: 68.0396 kg

DRUGS (2)
  1. WELLBUTRIN [Suspect]
     Indication: POSTPARTUM DEPRESSION
     Dosage: 150 MG DAILY PO
     Route: 048
     Dates: start: 20100903, end: 20100907
  2. AMBIEN [Suspect]

REACTIONS (2)
  - BRIEF PSYCHOTIC DISORDER, WITH POSTPARTUM ONSET [None]
  - COMPLETED SUICIDE [None]
